FAERS Safety Report 13997290 (Version 1)
Quarter: 2017Q3

REPORT INFORMATION
  Report Type: Spontaneous
  Country: US (occurrence: US)
  Receive Date: 20170921
  Receipt Date: 20170921
  Transmission Date: 20171128
  Serious: No
  Sender: FDA-Public Use
  Company Number: US-ALLERGAN-1721640US

PATIENT
  Age: 75 Year
  Sex: Female
  Weight: 60.32 kg

DRUGS (3)
  1. LASTACAFT [Suspect]
     Active Substance: ALCAFTADINE
     Dosage: UNK
     Route: 047
  2. LASTACAFT [Suspect]
     Active Substance: ALCAFTADINE
     Indication: SEASONAL ALLERGY
     Dosage: 2 GTT, BID
     Route: 047
     Dates: start: 201704, end: 20170514
  3. LASTACAFT [Suspect]
     Active Substance: ALCAFTADINE
     Dosage: 2 GTT, QD
     Route: 047
     Dates: start: 201704, end: 20170514

REACTIONS (6)
  - Eye irritation [Not Recovered/Not Resolved]
  - Vision blurred [Unknown]
  - Eye swelling [Recovered/Resolved]
  - Ocular hyperaemia [Recovered/Resolved]
  - Inappropriate schedule of drug administration [Unknown]
  - Eye pruritus [Not Recovered/Not Resolved]

NARRATIVE: CASE EVENT DATE: 201704
